FAERS Safety Report 19839079 (Version 1)
Quarter: 2021Q3

REPORT INFORMATION
  Report Type: Spontaneous
  Country: US (occurrence: US)
  Receive Date: 20210914
  Receipt Date: 20210914
  Transmission Date: 20211014
  Serious: Yes (Hospitalization)
  Sender: FDA-Public Use
  Company Number: None

PATIENT
  Age: 42 Year
  Sex: Male

DRUGS (1)
  1. TABRECTA [Suspect]
     Active Substance: CAPMATINIB
     Dosage: 200MG BID OROPHARINGEAL
     Route: 049
     Dates: start: 202109

REACTIONS (2)
  - Wrong schedule [None]
  - Seizure [None]

NARRATIVE: CASE EVENT DATE: 20210914
